FAERS Safety Report 9474455 (Version 5)
Quarter: 2014Q1

REPORT INFORMATION
  Report Type: Spontaneous
  Country: IT (occurrence: IT)
  Receive Date: 20130823
  Receipt Date: 20140218
  Transmission Date: 20141002
  Serious: Yes (Hospitalization)
  Sender: FDA-Public Use
  Company Number: IT-PFIZER INC-2013244696

PATIENT
  Age: 43 Year
  Sex: Female

DRUGS (5)
  1. LYRICA [Suspect]
     Dosage: 150 MG, SINGLE
     Route: 048
     Dates: start: 20130808, end: 20130808
  2. TAVOR [Suspect]
     Dosage: 12.5 MG, SINGLE
     Route: 048
     Dates: start: 20130808, end: 20130808
  3. XANAX [Suspect]
     Dosage: 1 MG, DAILY
     Route: 048
     Dates: start: 20130808, end: 20130808
  4. EN [Suspect]
     Dosage: 2 MG, SINGLE
     Route: 048
     Dates: start: 20130808, end: 20130808
  5. FLUNOX [Suspect]
     Dosage: 45 MG, SINGLE
     Route: 048
     Dates: start: 20130808, end: 20130808

REACTIONS (2)
  - Drug abuse [Recovered/Resolved]
  - Sopor [Recovered/Resolved]
